FAERS Safety Report 12636508 (Version 2)
Quarter: 2016Q3

REPORT INFORMATION
  Report Type: Spontaneous
  Country: IT (occurrence: IT)
  Receive Date: 20160809
  Receipt Date: 20160914
  Transmission Date: 20161109
  Serious: Yes (Other)
  Sender: FDA-Public Use
  Company Number: IT-ROCHE-1809753

PATIENT
  Age: 6 Year
  Sex: Female

DRUGS (1)
  1. SOMATROPIN [Suspect]
     Active Substance: SOMATROPIN
     Indication: GROWTH HORMONE DEFICIENCY
     Route: 065

REACTIONS (7)
  - Lymphadenitis [Unknown]
  - Evans syndrome [Unknown]
  - Hypoparathyroidism [Unknown]
  - Pseudolymphoma [Unknown]
  - Immunodeficiency common variable [Unknown]
  - Pulmonary granuloma [Unknown]
  - Hypocalcaemia [Unknown]
